FAERS Safety Report 24572583 (Version 1)
Quarter: 2024Q4

REPORT INFORMATION
  Report Type: Spontaneous
  Country: US (occurrence: US)
  Receive Date: 20241101
  Receipt Date: 20241101
  Transmission Date: 20250114
  Serious: No
  Sender: INCYTE
  Company Number: US-INCYTE CORPORATION-2024IN011014

PATIENT

DRUGS (2)
  1. MONJUVI [Suspect]
     Active Substance: TAFASITAMAB-CXIX
     Indication: Diffuse large B-cell lymphoma
     Dosage: UNK (70ML/HOUR)
     Route: 042
  2. MONJUVI [Suspect]
     Active Substance: TAFASITAMAB-CXIX
     Dosage: UNK REDUCED RATE OF INFUSION
     Route: 042

REACTIONS (1)
  - Infusion related reaction [Recovered/Resolved]
